FAERS Safety Report 7721198-3 (Version None)
Quarter: 2011Q3

REPORT INFORMATION
  Report Type: 
  Country: None (occurrence: None)
  Receive Date: 20110825
  Receipt Date: 20110807
  Transmission Date: 20111222
  Serious: Yes (Hospitalization)
  Sender: FDA-Public Use
  Company Number: 15961352

PATIENT
  Age: 56 Year
  Sex: Female

DRUGS (4)
  1. ENOXAPARIN SODIUM [Suspect]
     Indication: EMBOLISM
  2. PLACEBO [Suspect]
     Indication: EMBOLISM
  3. APIXABAN [Suspect]
     Indication: EMBOLISM
  4. WARFARIN SODIUM [Suspect]
     Indication: EMBOLISM

REACTIONS (2)
  - INFECTION [None]
  - PYELONEPHRITIS [None]
